FAERS Safety Report 12162650 (Version 1)
Quarter: 2016Q1

REPORT INFORMATION
  Report Type: Spontaneous
  Country: US (occurrence: None)
  Receive Date: 20160308
  Receipt Date: 20160308
  Transmission Date: 20160526
  Serious: Yes (Other)
  Sender: FDA-Public Use
  Company Number: None

PATIENT
  Age: 52 Year
  Sex: Female
  Weight: 90.72 kg

DRUGS (2)
  1. LIALDA [Concomitant]
     Active Substance: MESALAMINE
  2. MOXIFLOXACIN HCL 400 MG DR. REDDY^S LAB [Suspect]
     Active Substance: MOXIFLOXACIN
     Indication: SINUSITIS
     Dosage: 1 PILL ONCE DAILY TAKEN BY MOUTH
     Route: 048
     Dates: start: 20160301, end: 20160302

REACTIONS (6)
  - Swollen tongue [None]
  - Blood pressure increased [None]
  - Paraesthesia oral [None]
  - Rash [None]
  - Swelling face [None]
  - Heart rate increased [None]

NARRATIVE: CASE EVENT DATE: 20160302
